FAERS Safety Report 8772456 (Version 1)
Quarter: 2012Q4

REPORT INFORMATION
  Report Type: 
  Country: US (occurrence: US)
  Receive Date: 20120905
  Receipt Date: 20120905
  Transmission Date: 20130627
  Serious: No
  Sender: FDA-Public Use
  Company Number: US-009507513-1208USA006194

PATIENT

DRUGS (4)
  1. VICTRELIS [Suspect]
     Dosage: 4 DF, q8h
     Route: 048
  2. PEG-INTRON [Suspect]
     Dosage: 0.5 ml, qw
     Route: 058
  3. REBETOL [Suspect]
     Dosage: UNK
     Route: 048
  4. ALBUTEROL [Concomitant]
     Dosage: UNK

REACTIONS (1)
  - Fatigue [Unknown]
